FAERS Safety Report 10219906 (Version 3)
Quarter: 2014Q3

REPORT INFORMATION
  Report Type: Report from Study
  Country: BR (occurrence: BR)
  Receive Date: 20140605
  Receipt Date: 20140929
  Transmission Date: 20150326
  Serious: Yes (Hospitalization, Other)
  Sender: FDA-Public Use
  Company Number: BR-BRISTOL-MYERS SQUIBB COMPANY-19534528

PATIENT
  Age: 24 Year
  Sex: Female
  Weight: 54 kg

DRUGS (3)
  1. ATAZANAVIR [Suspect]
     Active Substance: ATAZANAVIR
     Indication: HIV INFECTION
     Dosage: LAST DOSE 02JUL13
     Route: 048
     Dates: start: 20130625
  2. TENOFOVIR DF + EMTRICITABINE [Suspect]
     Active Substance: EMTRICITABINE\TENOFOVIR DISOPROXIL FUMARATE
     Indication: HIV INFECTION
     Dosage: LAST DOSE 02JUL13
     Route: 048
     Dates: start: 20130625
  3. RITONAVIR [Suspect]
     Active Substance: RITONAVIR
     Indication: HIV INFECTION
     Dosage: LAST DOSE 02JUL13
     Route: 048
     Dates: start: 20130625, end: 20130702

REACTIONS (6)
  - Pneumonia [Unknown]
  - Weight increased [Unknown]
  - Partial seizures [Unknown]
  - Depressed level of consciousness [Unknown]
  - Cerebral toxoplasmosis [Recovered/Resolved with Sequelae]
  - Oropharyngeal candidiasis [Unknown]

NARRATIVE: CASE EVENT DATE: 2013
